FAERS Safety Report 7460548-2 (Version None)
Quarter: 2011Q2

REPORT INFORMATION
  Report Type: 
  Country: None (occurrence: None)
  Receive Date: 20110505
  Receipt Date: 20110114
  Transmission Date: 20111010
  Serious: Yes (Hospitalization, Other)
  Sender: FDA-Public Use
  Company Number: JP-AMGEN-JPNCT2010008026

PATIENT
  Age: 61 Year
  Sex: Male
  Weight: 59 kg

DRUGS (13)
  1. LOCOID [Concomitant]
     Route: 062
  2. OXYCONTIN [Concomitant]
     Route: 048
  3. HIRUDOID SOFT [Concomitant]
     Route: 062
  4. RINDERON-VG [Concomitant]
     Dosage: UNK UNK, UNK
     Route: 062
  5. OXINORM [Concomitant]
     Route: 048
  6. OMEPRAL [Concomitant]
     Route: 048
  7. RHYTHMY [Concomitant]
     Route: 048
  8. MYSER [Concomitant]
     Route: 062
  9. DUROTEP [Concomitant]
     Route: 062
  10. BIOFERMIN [Concomitant]
     Route: 048
  11. PANITUMUMAB [Suspect]
     Indication: COLORECTAL CANCER
     Dosage: 6 MG/KG, Q2WK
     Route: 041
     Dates: start: 20100818, end: 20100818
  12. TSUMURA DAIKENTYUTO [Concomitant]
     Route: 048
  13. MORPHINE HCL ELIXIR [Concomitant]
     Route: 042

REACTIONS (6)
  - BILE DUCT STONE [None]
  - PYREXIA [None]
  - HYPOKALAEMIA [None]
  - PAIN [None]
  - ENTEROCOLITIS [None]
  - RASH [None]
